FAERS Safety Report 9476035 (Version 1)
Quarter: 2013Q3

REPORT INFORMATION
  Report Type: Spontaneous
  Country: CA (occurrence: None)
  Receive Date: 20130821
  Receipt Date: 20130821
  Transmission Date: 20140515
  Serious: Yes (Life-Threatening)
  Sender: FDA-Public Use
  Company Number: 2013P1018204

PATIENT
  Age: 64 Year
  Sex: Female

DRUGS (5)
  1. MORPHINE [Suspect]
     Indication: PREOPERATIVE CARE
     Route: 008
  2. MORPHINE [Suspect]
     Indication: PAIN
     Route: 008
  3. FENTANYL [Suspect]
     Indication: INDUCTION OF ANAESTHESIA
     Route: 042
  4. DESFLURANE [Concomitant]
  5. BUPIVICAINE [Concomitant]

REACTIONS (5)
  - Blood pressure decreased [None]
  - No therapeutic response [None]
  - Blood pH decreased [None]
  - Respiratory depression [None]
  - Unresponsive to stimuli [None]
